FAERS Safety Report 8329597 (Version 3)
Quarter: 2013Q4

REPORT INFORMATION
  Report Type: Report from Study
  Country: MX (occurrence: MX)
  Receive Date: 20120110
  Receipt Date: 20131001
  Transmission Date: 20140711
  Serious: Yes (Hospitalization)
  Sender: FDA-Public Use
  Company Number: PHHY2012MX001489

PATIENT
  Age: 78 Year
  Sex: Female

DRUGS (3)
  1. ACLASTA [Suspect]
     Indication: OSTEOPOROSIS
     Dosage: 5 MG/100ML/ PER YEAR
     Route: 042
     Dates: start: 201001
  2. PARACETAMOL [Concomitant]
     Indication: PAIN
     Dosage: UNK
  3. CLONAZEPAM [Concomitant]
     Indication: SLEEP DISORDER
     Dosage: 1/4 OF TABLET

REACTIONS (4)
  - Abscess limb [Not Recovered/Not Resolved]
  - Pain in extremity [Not Recovered/Not Resolved]
  - Bone pain [Not Recovered/Not Resolved]
  - Drug ineffective [Not Recovered/Not Resolved]
